FAERS Safety Report 4332800-0 (Version None)
Quarter: 2004Q1

REPORT INFORMATION
  Report Type: 
  Country: None (occurrence: None)
  Receive Date: 20040330
  Receipt Date: 20040317
  Transmission Date: 20041129
  Serious: Yes (Hospitalization)
  Sender: FDA-Public Use
  Company Number: B01200202899

PATIENT
  Age: 47 Year
  Sex: Female

DRUGS (7)
  1. OXALIPLATIN [Suspect]
     Indication: COLORECTAL CANCER METASTATIC
     Dosage: 65 MG/M2, Q3W
     Route: 042
     Dates: start: 20021011, end: 20021011
  2. IRINOTECAN, SOLUTION, 160 MG/M2 [Suspect]
     Dosage: 160 MG/M2/Q3W
     Route: 042
     Dates: start: 20021011, end: 20021011
  3. PROZAC [Concomitant]
  4. ZOFRAN (ONDANSETROL HCL) [Concomitant]
  5. LORAZEPAM [Concomitant]
  6. WARFARIN SODIUM [Concomitant]
  7. ATROPINE W/DIPHENOXYLATE [Concomitant]

REACTIONS (9)
  - BLOOD POTASSIUM DECREASED [None]
  - CATHETER SITE ERYTHEMA [None]
  - DEEP VEIN THROMBOSIS [None]
  - HAEMOGLOBIN DECREASED [None]
  - LEUKOPENIA [None]
  - NEUTROPENIC SEPSIS [None]
  - OEDEMA PERIPHERAL [None]
  - PLATELET COUNT DECREASED [None]
  - STAPHYLOCOCCAL INFECTION [None]
